FAERS Safety Report 8772485 (Version 1)
Quarter: 2012Q4

REPORT INFORMATION
  Report Type: 
  Country: US (occurrence: US)
  Receive Date: 20120905
  Receipt Date: 20120905
  Transmission Date: 20130627
  Serious: No
  Sender: FDA-Public Use
  Company Number: US-009507513-1209USA000753

PATIENT

DRUGS (1)
  1. PROPECIA [Suspect]
     Dosage: 1 mg, UNK
     Dates: start: 200205

REACTIONS (2)
  - Cognitive disorder [Not Recovered/Not Resolved]
  - Sexual dysfunction [Not Recovered/Not Resolved]
